FAERS Safety Report 9188044 (Version 1)
Quarter: 2013Q1

REPORT INFORMATION
  Report Type: Spontaneous
  Country: US (occurrence: US)
  Receive Date: 20130325
  Receipt Date: 20130325
  Transmission Date: 20140127
  Serious: No
  Sender: FDA-Public Use
  Company Number: US-MYLANLABS-2012S1026564

PATIENT
  Age: 51 Year
  Sex: Male
  Weight: 97.52 kg

DRUGS (3)
  1. FENTANYL TRANSDERMAL SYSTEM [Suspect]
     Indication: BACK PAIN
     Dosage: Q72HR
     Route: 062
     Dates: start: 2006
  2. FENTANYL TRANSDERMAL SYSTEM [Suspect]
     Indication: PAIN IN EXTREMITY
     Dosage: Q72HR
     Route: 062
     Dates: start: 2006
  3. TRAMADOL [Concomitant]
     Indication: PAIN

REACTIONS (1)
  - Hot flush [Not Recovered/Not Resolved]
